FAERS Safety Report 6640580-9 (Version None)
Quarter: 2010Q1

REPORT INFORMATION
  Report Type: 
  Country: None (occurrence: None)
  Receive Date: 20100318
  Receipt Date: 20100311
  Transmission Date: 20100710
  Serious: Yes (Death, Hospitalization, Other)
  Sender: FDA-Public Use
  Company Number: US-MERCK-0709USA00202

PATIENT
  Age: 79 Year
  Sex: Female
  Weight: 59 kg

DRUGS (1)
  1. FOSAMAX [Suspect]
     Indication: OSTEOPOROSIS
     Route: 048
     Dates: start: 20010330, end: 20040901

REACTIONS (30)
  - ABDOMINAL PAIN [None]
  - ABDOMINAL TENDERNESS [None]
  - ADVERSE DRUG REACTION [None]
  - ANAEMIA [None]
  - AORTIC STENOSIS [None]
  - ARRHYTHMIA [None]
  - ASTHENIA [None]
  - ATRIAL FIBRILLATION [None]
  - CARDIAC FAILURE CONGESTIVE [None]
  - CORONARY ARTERY DISEASE [None]
  - DECREASED APPETITE [None]
  - DEHYDRATION [None]
  - GASTRITIS [None]
  - HAEMOGLOBIN DECREASED [None]
  - HYPERTENSION [None]
  - INTESTINAL INFARCTION [None]
  - JAW FRACTURE [None]
  - MOUTH ULCERATION [None]
  - OSTEITIS [None]
  - OSTEONECROSIS [None]
  - POSTNASAL DRIP [None]
  - RENAL FAILURE [None]
  - RESPIRATORY FAILURE [None]
  - SOFT TISSUE INFECTION [None]
  - SYNCOPE [None]
  - TACHYARRHYTHMIA [None]
  - TOOTH ABSCESS [None]
  - VERTIGO [None]
  - VOMITING [None]
  - WEIGHT DECREASED [None]
